FAERS Safety Report 9077659 (Version 1)
Quarter: 2013Q1

REPORT INFORMATION
  Report Type: Report from Study
  Country: US (occurrence: US)
  Receive Date: 20130130
  Receipt Date: 20130130
  Transmission Date: 20140127
  Serious: No
  Sender: FDA-Public Use
  Company Number: US-ABBOTT-12P-163-0954412-00

PATIENT
  Age: 57 None
  Sex: Female
  Weight: 104.42 kg

DRUGS (16)
  1. HUMIRA 40 MG/0.8 ML PEN [Suspect]
     Indication: PSORIASIS
     Dates: start: 20120618, end: 20120625
  2. ATENOLOL [Concomitant]
     Indication: HYPERTENSION
  3. CARAFATE [Concomitant]
     Indication: EPIGASTRIC DISCOMFORT
  4. CELEBREX [Concomitant]
     Indication: PSORIATIC ARTHROPATHY
  5. DICLOFENAC [Concomitant]
     Indication: PSORIATIC ARTHROPATHY
  6. EFFEXOR [Concomitant]
     Indication: DEPRESSION
  7. FOLIC ACID [Concomitant]
     Indication: MINERAL SUPPLEMENTATION
  8. LEVOXYL [Concomitant]
     Indication: THYROIDECTOMY
  9. METHOTREXATE [Concomitant]
     Indication: PSORIATIC ARTHROPATHY
  10. OMEPRAZOLE [Concomitant]
     Indication: EPIGASTRIC DISCOMFORT
  11. OMEPRAZOLE [Concomitant]
     Indication: GASTROOESOPHAGEAL REFLUX DISEASE
  12. PLAQUENIL [Concomitant]
     Indication: PSORIATIC ARTHROPATHY
  13. TRAMADOL [Concomitant]
     Indication: PAIN
  14. FISH OIL [Concomitant]
     Indication: PRODUCT USED FOR UNKNOWN INDICATION
  15. MULTIVITAMIN [Concomitant]
     Indication: PRODUCT USED FOR UNKNOWN INDICATION
  16. LOVOXYL [Concomitant]
     Indication: PRODUCT USED FOR UNKNOWN INDICATION

REACTIONS (7)
  - Joint swelling [Not Recovered/Not Resolved]
  - Erythema [Not Recovered/Not Resolved]
  - Feeling hot [Not Recovered/Not Resolved]
  - Feeling abnormal [Not Recovered/Not Resolved]
  - Bursitis [Recovering/Resolving]
  - Cellulitis [Recovering/Resolving]
  - Arthralgia [Not Recovered/Not Resolved]
